FAERS Safety Report 9452328 (Version 4)
Quarter: 2015Q2

REPORT INFORMATION
  Report Type: Spontaneous
  Country: US (occurrence: US)
  Receive Date: 20130812
  Receipt Date: 20150619
  Transmission Date: 20150821
  Serious: Yes (Congenital Anomaly, Other)
  Sender: FDA-Public Use
  Company Number: US-ELI_LILLY_AND_COMPANY-US201308000493

PATIENT

DRUGS (4)
  1. ASPIRIN                            /00002701/ [Concomitant]
     Active Substance: ASPIRIN
  2. NIFEDIPINE. [Concomitant]
     Active Substance: NIFEDIPINE
  3. PROGESTERONE. [Concomitant]
     Active Substance: PROGESTERONE
  4. PROZAC [Suspect]
     Active Substance: FLUOXETINE HYDROCHLORIDE
     Indication: PRODUCT USED FOR UNKNOWN INDICATION
     Dosage: 20 MG, UNKNOWN
     Route: 064

REACTIONS (5)
  - Transient tachypnoea of the newborn [Unknown]
  - Foetal exposure during pregnancy [Recovered/Resolved]
  - Talipes [Unknown]
  - Gastrooesophageal reflux disease [Unknown]
  - Premature baby [Unknown]
